FAERS Safety Report 23681167 (Version 1)
Quarter: 2024Q1

REPORT INFORMATION
  Report Type: Report from Study
  Country: US (occurrence: US)
  Receive Date: 20240328
  Receipt Date: 20240328
  Transmission Date: 20240409
  Serious: Yes (Hospitalization, Other)
  Sender: FDA-Public Use
  Company Number: US-BEH-2024169984

PATIENT
  Age: 34 Year
  Sex: Female
  Weight: 76.644 kg

DRUGS (6)
  1. BERINERT [Suspect]
     Active Substance: HUMAN C1-ESTERASE INHIBITOR
     Indication: Hereditary angioedema
     Dosage: 500 INTERNATIONAL UNIT/KILOGRAM, PRN
     Route: 042
     Dates: start: 20240306, end: 20240306
  2. BERINERT [Suspect]
     Active Substance: HUMAN C1-ESTERASE INHIBITOR
     Indication: Hereditary angioedema
     Dosage: 500 INTERNATIONAL UNIT/KILOGRAM, PRN
     Route: 042
     Dates: start: 20240306, end: 20240306
  3. BERINERT [Suspect]
     Active Substance: HUMAN C1-ESTERASE INHIBITOR
     Dosage: 1500 INTERNATIONAL UNIT/KILOGRAM, PRN
     Route: 065
  4. BERINERT [Suspect]
     Active Substance: HUMAN C1-ESTERASE INHIBITOR
     Dosage: 1500 INTERNATIONAL UNIT/KILOGRAM, PRN
     Route: 065
  5. BERINERT [Suspect]
     Active Substance: HUMAN C1-ESTERASE INHIBITOR
     Dosage: 1500 INTERNATIONAL UNIT, PRN
     Route: 065
     Dates: start: 20240312
  6. BERINERT [Suspect]
     Active Substance: HUMAN C1-ESTERASE INHIBITOR
     Dosage: 1500 INTERNATIONAL UNIT, PRN
     Route: 065
     Dates: start: 20240312

REACTIONS (15)
  - Loss of consciousness [Recovered/Resolved]
  - Loss of consciousness [Unknown]
  - Vomiting [Unknown]
  - No adverse event [Unknown]
  - Off label use [Unknown]
  - Hereditary angioedema [Unknown]
  - Brain oedema [Unknown]
  - Nasal congestion [Unknown]
  - Angina pectoris [Unknown]
  - Eye swelling [Unknown]
  - Hereditary angioedema [Unknown]
  - Aphonia [Unknown]
  - Device issue [Unknown]
  - Product preparation issue [Unknown]
  - Hereditary angioedema [Unknown]

NARRATIVE: CASE EVENT DATE: 20240301
